FAERS Safety Report 5009822-X (Version None)
Quarter: 2006Q2

REPORT INFORMATION
  Report Type: 
  Country: None (occurrence: None)
  Receive Date: 20060522
  Receipt Date: 20060509
  Transmission Date: 20061013
  Serious: Yes (Other)
  Sender: FDA-Public Use
  Company Number: 2006063546

PATIENT
  Age: 56 Year
  Sex: Male

DRUGS (3)
  1. METHYLPREDNISOLONE SODIUM SUCCINATE [Suspect]
     Indication: ASTHENIA
     Dosage: 1 GRAM (1 GRAM, 1 IN 1 D), INTRAVENOUS
     Route: 042
     Dates: start: 20020501
  2. METHYLPREDNISOLONE SODIUM SUCCINATE [Suspect]
     Indication: DYSAESTHESIA
     Dosage: 1 GRAM (1 GRAM, 1 IN 1 D), INTRAVENOUS
     Route: 042
     Dates: start: 20020501
  3. METHYLPREDNISOLONE SODIUM SUCCINATE [Suspect]
     Indication: PAIN
     Dosage: 1 GRAM (1 GRAM, 1 IN 1 D), INTRAVENOUS
     Route: 042
     Dates: start: 20020501

REACTIONS (2)
  - HICCUPS [None]
  - THERAPY NON-RESPONDER [None]
